FAERS Safety Report 25292618 (Version 2)
Quarter: 2025Q2

REPORT INFORMATION
  Report Type: Spontaneous
  Country: US (occurrence: US)
  Receive Date: 20250510
  Receipt Date: 20250510
  Transmission Date: 20250716
  Serious: No
  Sender: SANOFI AVENTIS
  Company Number: US-SANOFI-02501001

PATIENT
  Age: 57 Year
  Sex: Female

DRUGS (1)
  1. DUPIXENT [Suspect]
     Active Substance: DUPILUMAB
     Indication: Asthma
     Dosage: 300 MG, QOW
     Route: 065
     Dates: start: 202502, end: 20250416

REACTIONS (6)
  - Abdominal pain [Unknown]
  - Flatulence [Unknown]
  - Dizziness [Unknown]
  - Injection site pain [Unknown]
  - Injection site swelling [Unknown]
  - Hypersensitivity [Unknown]
